FAERS Safety Report 5824303-9 (Version None)
Quarter: 2008Q3

REPORT INFORMATION
  Report Type: 
  Country: None (occurrence: None)
  Receive Date: 20080728
  Receipt Date: 20080722
  Transmission Date: 20090109
  Serious: Yes (Other)
  Sender: FDA-Public Use
  Company Number: IT-AVENTIS-200817000GDDC

PATIENT
  Age: 47 Year
  Sex: Male

DRUGS (4)
  1. ARAVA [Suspect]
     Route: 048
     Dates: start: 20070522, end: 20071220
  2. PANTORC [Concomitant]
     Route: 048
  3. METHOTREXATE [Concomitant]
  4. FOLIC ACID [Concomitant]

REACTIONS (1)
  - TRANSAMINASES INCREASED [None]
